FAERS Safety Report 5331496-9 (Version None)
Quarter: 2007Q2

REPORT INFORMATION
  Report Type: 
  Country: None (occurrence: None)
  Receive Date: 20070522
  Receipt Date: 20070509
  Transmission Date: 20071010
  Serious: Yes (Hospitalization)
  Sender: FDA-Public Use
  Company Number: US-ELI_LILLY_AND_COMPANY-US200612001255

PATIENT
  Age: 57 Year
  Sex: Female
  Weight: 90.702 kg

DRUGS (10)
  1. BYETTA [Suspect]
     Indication: DIABETES MELLITUS NON-INSULIN-DEPENDENT
     Dosage: 5 UG, 2/D
     Route: 058
     Dates: start: 20060827, end: 20070307
  2. GLIPIZIDE [Concomitant]
  3. GLUCOPHAGE [Concomitant]
     Indication: BLOOD GLUCOSE ABNORMAL
     Dosage: 500 MG, 2/D
     Route: 048
     Dates: start: 20060926
  4. GLUCOPHAGE [Concomitant]
     Dosage: 850 MG, 2/D
     Dates: end: 20060901
  5. ACTOS [Concomitant]
     Dates: start: 20060901, end: 20061001
  6. METOPROLOL SUCCINATE [Concomitant]
     Indication: BLOOD PRESSURE
     Dosage: 100 MG, DAILY (1/D)
     Route: 048
     Dates: start: 19990101
  7. ISOSORBIDE [Concomitant]
     Indication: BLOOD PRESSURE
     Dosage: 10 MG, 2/D
     Route: 048
  8. XANAX                                   /USA/ [Concomitant]
     Indication: ANXIETY
     Dosage: 1 MG, AS NEEDED
     Route: 048
  9. OMEPRAZOLE [Concomitant]
     Indication: REFLUX OESOPHAGITIS
     Dosage: 40 MG, DAILY (1/D)
     Route: 048
  10. LOVASTATIN [Concomitant]
     Indication: HYPERLIPIDAEMIA
     Dosage: 80 MG, EACH EVENING
     Route: 048

REACTIONS (17)
  - CLOSTRIDIAL INFECTION [None]
  - DIABETES MELLITUS INADEQUATE CONTROL [None]
  - DIABETIC NEPHROPATHY [None]
  - DYSURIA [None]
  - FALL [None]
  - FUNGAL INFECTION [None]
  - HUMERUS FRACTURE [None]
  - HYPERLIPIDAEMIA [None]
  - INSOMNIA [None]
  - LEUKOCYTOSIS [None]
  - MEDICATION ERROR [None]
  - NAUSEA [None]
  - PYREXIA [None]
  - THIRST [None]
  - TOOTH ABSCESS [None]
  - VOMITING [None]
  - WEIGHT DECREASED [None]
